FAERS Safety Report 22044980 (Version 1)
Quarter: 2023Q1

REPORT INFORMATION
  Report Type: Spontaneous
  Country: US (occurrence: None)
  Receive Date: 20230227
  Receipt Date: 20230227
  Transmission Date: 20230418
  Serious: Yes (Disabling)
  Sender: FDA-Public Use
  Company Number: None

PATIENT
  Age: 73 Year
  Sex: Female
  Weight: 112.5 kg

DRUGS (10)
  1. INGREZZA [Suspect]
     Active Substance: VALBENAZINE
     Indication: Tardive dyskinesia
     Dosage: FREQUENCY : DAILY;?
     Route: 048
     Dates: start: 20211025, end: 20220411
  2. OMEPRAZOLE [Concomitant]
     Active Substance: OMEPRAZOLE
  3. DILTIAZEM [Concomitant]
     Active Substance: DILTIAZEM
  4. METOPROLOL [Concomitant]
     Active Substance: METOPROLOL
  5. SPIRONOLACTONE [Concomitant]
     Active Substance: SPIRONOLACTONE
  6. LATANOPROST [Concomitant]
     Active Substance: LATANOPROST
  7. DORZOLAMIDE [Concomitant]
     Active Substance: DORZOLAMIDE
  8. ASPIRIN [Concomitant]
     Active Substance: ASPIRIN
  9. TRAZODONE [Concomitant]
     Active Substance: TRAZODONE HYDROCHLORIDE
  10. CITALOPRAM [Concomitant]
     Active Substance: CITALOPRAM HYDROBROMIDE

REACTIONS (2)
  - Oedema peripheral [None]
  - Parkinsonism [None]

NARRATIVE: CASE EVENT DATE: 20220411
